FAERS Safety Report 9467620 (Version 1)
Quarter: 2013Q3

REPORT INFORMATION
  Report Type: Spontaneous
  Country: US (occurrence: None)
  Receive Date: 20130819
  Receipt Date: 20130819
  Transmission Date: 20140515
  Serious: Yes (Other)
  Sender: FDA-Public Use
  Company Number: None

PATIENT
  Age: 58 Year
  Sex: Female
  Weight: 102.06 kg

DRUGS (1)
  1. ADVAIR 250/50 [Suspect]
     Indication: ASTHMA
     Dosage: 2    TWICE DAILY  INHALATION
     Route: 055
     Dates: start: 20110401, end: 20130701

REACTIONS (2)
  - Pneumonia [None]
  - Respiratory tract infection [None]
